FAERS Safety Report 24619229 (Version 1)
Quarter: 2024Q4

REPORT INFORMATION
  Report Type: Spontaneous
  Country: US (occurrence: None)
  Receive Date: 20241114
  Receipt Date: 20241114
  Transmission Date: 20250115
  Serious: No
  Sender: Public
  Company Number: None

PATIENT
  Sex: Female

DRUGS (1)
  1. SORAFENIB [Suspect]
     Active Substance: SORAFENIB

REACTIONS (5)
  - Hypertension [None]
  - Oral pain [None]
  - Glossodynia [None]
  - Swelling face [None]
  - Dysphonia [None]
